FAERS Safety Report 4494941-7 (Version None)
Quarter: 2004Q4

REPORT INFORMATION
  Report Type: 
  Country: None (occurrence: None)
  Receive Date: 20041104
  Receipt Date: 20041104
  Transmission Date: 20050328
  Serious: Yes (Life-Threatening, Hospitalization)
  Sender: FDA-Public Use
  Company Number: None

PATIENT
  Age: 77 Year
  Sex: Female
  Weight: 74.8435 kg

DRUGS (1)
  1. VIOXX [Suspect]
     Indication: ARTHRITIS
     Dosage: 25 MG ONCE DAILY [WHEN FIRST CAME TO MARKET UNTIL DAY OF RECALL]

REACTIONS (1)
  - MYOCARDIAL INFARCTION [None]
